FAERS Safety Report 25394700 (Version 3)
Quarter: 2025Q4

REPORT INFORMATION
  Report Type: Spontaneous
  Country: EU (occurrence: EU)
  Receive Date: 20250604
  Receipt Date: 20251118
  Transmission Date: 20260117
  Serious: Yes (Hospitalization)
  Sender: SANDOZ
  Company Number: EU-ROCHE-10000286499

PATIENT
  Age: 59 Year
  Sex: Female
  Weight: 85 kg

DRUGS (10)
  1. ATEZOLIZUMAB [Suspect]
     Active Substance: ATEZOLIZUMAB
     Indication: Triple negative breast cancer
     Dosage: 1200 MG, ON 22-APR-2025, SHE RECEIVED MOST RECENT DOSE OF ATEZOLIZUMAB PRIOR TO SAE.
     Route: 042
     Dates: start: 20241216
  2. ATEZOLIZUMAB [Suspect]
     Active Substance: ATEZOLIZUMAB
     Dosage: 1200 MG, ON 22-APR-2025, SHE RECEIVED MOST RECENT DOSE OF ATEZOLIZUMAB PRIOR TO SAE.
     Route: 042
     Dates: start: 20250707
  3. CARBOPLATIN [Suspect]
     Active Substance: CARBOPLATIN
     Indication: Triple negative breast cancer
     Dosage: 540 MG, TOTAL DOSE : 2160 MGON 03-MAR-2025, SHE RECEIVED MOST RECENT DOSE OF CARBOPLATINE PRIOR TO S
     Route: 042
     Dates: start: 20241216
  4. CYCLOPHOSPHAMIDE [Suspect]
     Active Substance: CYCLOPHOSPHAMIDE
     Indication: Triple negative breast cancer
     Dosage: 600 MG/M2 (TOTAL DOSE: 1800 MILLIGRAM/SQ. METER ON 22-APR-2025, SHE RECEIVED MOST RECENT DOSE OF CYC
     Route: 042
     Dates: start: 20250311
  5. DOXORUBICIN HYDROCHLORIDE [Suspect]
     Active Substance: DOXORUBICIN HYDROCHLORIDE
     Indication: Triple negative breast cancer
     Dosage: 60 MG/M2 (TOTAL DOSE: 180 MILLIGRAM/SQ. METER ON 22- APR-2025, SHE RECEIVED MOST RECENT DOSE OF DOXO
     Route: 042
     Dates: start: 20250311
  6. PACLITAXEL [Suspect]
     Active Substance: PACLITAXEL
     Indication: Triple negative breast cancer
     Dosage: 100 MG/M2 (TOTAL DOSE: 1200 MG/M2ON 03-MAR-2025, SHE RECEIVED MOST RECENT DOSE OF NAB-PACLITAXEL PRI
     Route: 042
     Dates: start: 20241216
  7. TIRAGOLUMAB [Suspect]
     Active Substance: TIRAGOLUMAB
     Indication: Triple negative breast cancer
     Dosage: 600 MG, ON 22-APR-2025, SHE RECEIVED MOST RECENT DOSE OF TIRAGOLUMAB PRIOR TO SAE
     Route: 042
     Dates: start: 20241216
  8. TIRAGOLUMAB [Suspect]
     Active Substance: TIRAGOLUMAB
     Dosage: 600 MG, ON 22-APR-2025, SHE RECEIVED MOST RECENT DOSE OF TIRAGOLUMAB PRIOR TO SAE
     Route: 042
     Dates: start: 20250707
  9. Akynzeo [Concomitant]
     Indication: Product used for unknown indication
     Route: 065
  10. ONDANSETRON [Concomitant]
     Active Substance: ONDANSETRON
     Indication: Nausea
     Dosage: UNK
     Route: 065

REACTIONS (2)
  - Troponin increased [Recovered/Resolved]
  - Chest pain [Not Recovered/Not Resolved]

NARRATIVE: CASE EVENT DATE: 20250512
